FAERS Safety Report 4366398-8 (Version None)
Quarter: 2004Q2

REPORT INFORMATION
  Report Type: 
  Country: None (occurrence: None)
  Receive Date: 20040527
  Receipt Date: 20010705
  Transmission Date: 20050107
  Serious: Yes (Death, Hospitalization, Other)
  Sender: FDA-Public Use
  Company Number: 20010830023

PATIENT
  Age: 65 Year
  Sex: Male

DRUGS (13)
  1. BMS561390 [Concomitant]
     Indication: HIV INFECTION
     Route: 048
     Dates: start: 20010403, end: 20010704
  2. DIDANOSINE [Suspect]
     Indication: HIV INFECTION
     Route: 048
     Dates: start: 20010403, end: 20010704
  3. STAVUDINE [Suspect]
     Indication: HIV INFECTION
     Route: 048
     Dates: start: 20010403, end: 20010704
  4. INSULIN [Concomitant]
     Dates: end: 20010714
  5. CAPTOPRIL [Concomitant]
     Dates: start: 20001001, end: 20010713
  6. GEMFIBROZIL [Concomitant]
     Dates: start: 20001001, end: 20010712
  7. SMZ-TMP [Concomitant]
     Dates: start: 19950419, end: 20010713
  8. OMEPRAZOLE [Concomitant]
     Dates: start: 20010306, end: 20010713
  9. BROMAZEPAM [Concomitant]
     Dates: start: 20010613, end: 20010625
  10. ANTIHEMOPHILIC FACTOR (HUMAN) [Concomitant]
     Dosage: 3 UNIT
     Dates: start: 19770101
  11. NOCTAMID [Concomitant]
     Dates: start: 20010625
  12. DEPRAX [Concomitant]
     Dates: start: 20010625, end: 20010630
  13. FACTOR III [Concomitant]

REACTIONS (17)
  - ABNORMAL BEHAVIOUR [None]
  - ANAEMIA [None]
  - ANOREXIA [None]
  - ASCITES [None]
  - ASTHENIA [None]
  - CHEST PAIN [None]
  - CONFUSIONAL STATE [None]
  - DELIRIUM [None]
  - DISTURBANCE IN ATTENTION [None]
  - ENCEPHALOPATHY [None]
  - GAIT DISTURBANCE [None]
  - HEADACHE [None]
  - HEPATIC FAILURE [None]
  - LACTIC ACIDOSIS [None]
  - VERTIGO [None]
  - VISION BLURRED [None]
  - VOMITING [None]
